FAERS Safety Report 6492831-1 (Version None)
Quarter: 2009Q4

REPORT INFORMATION
  Report Type: 
  Country: None (occurrence: None)
  Receive Date: 20091214
  Receipt Date: 20091209
  Transmission Date: 20100525
  Serious: Yes (Death, Hospitalization, Other)
  Sender: FDA-Public Use
  Company Number: BE-BAYER-200939780GPV

PATIENT
  Age: 61 Year
  Sex: Male

DRUGS (1)
  1. NEXAVAR [Suspect]
     Indication: HEPATIC NEOPLASM MALIGNANT
     Dosage: TOTAL DAILY DOSE: 800 MG
     Route: 048
     Dates: start: 20090901, end: 20090930

REACTIONS (5)
  - ACUTE HEPATIC FAILURE [None]
  - COMA HEPATIC [None]
  - DIARRHOEA [None]
  - ENCEPHALOPATHY [None]
  - MALAISE [None]
